FAERS Safety Report 16882095 (Version 9)
Quarter: 2020Q4

REPORT INFORMATION
  Report Type: Spontaneous
  Country: PK (occurrence: PK)
  Receive Date: 20191003
  Receipt Date: 20201222
  Transmission Date: 20210113
  Serious: Yes (Other)
  Sender: FDA-Public Use
  Company Number: PK-PFIZER INC-2019097641

PATIENT
  Age: 43 Year
  Sex: Male
  Weight: 59 kg

DRUGS (8)
  1. SUTENT [Suspect]
     Active Substance: SUNITINIB MALATE
     Indication: METASTATIC RENAL CELL CARCINOMA
     Dosage: 25 MG, DAILY (4 WEEKS ON/2 WEEKS OFF)
     Route: 048
     Dates: start: 20190109
  2. SUTENT [Suspect]
     Active Substance: SUNITINIB MALATE
     Dosage: 25 MG, DAILY (FOR 15 DAYS AND REST FOR ONE WEEK)
     Route: 048
  3. LEVOFLOXACIN. [Concomitant]
     Active Substance: LEVOFLOXACIN
     Dosage: 500 MG, 1X/DAY
     Dates: start: 20190930
  4. NEXIUM [Concomitant]
     Active Substance: ESOMEPRAZOLE MAGNESIUM
     Dosage: 40 MG, 1X/DAY (HALF AN HOUR BEFORE BREAKFAST)
     Dates: start: 20190930
  5. TONOFLEX P [Concomitant]
     Indication: PAIN
     Dosage: UNK, AS NEEDED
     Dates: start: 20190930
  6. ZANTAC [Concomitant]
     Active Substance: RANITIDINE HYDROCHLORIDE
     Indication: HYPERCHLORHYDRIA
     Dosage: 150 MG, 2X/DAY (MORNING AND EVENING, 14 DAYS)
     Dates: start: 20190930
  7. ALP [Concomitant]
     Active Substance: ALPRAZOLAM
     Dosage: 0.25 MG, 1X/DAY (BEFORE GOING TO BED)
     Dates: start: 20190930
  8. SUTENT [Suspect]
     Active Substance: SUNITINIB MALATE
     Dosage: 25 MG, DAILY (1 MONTH)

REACTIONS (4)
  - Osteopenia [Recovered/Resolved]
  - Blood lactate dehydrogenase increased [Recovered/Resolved]
  - Hypoaesthesia [Recovered/Resolved]
  - Hyperuricaemia [Recovered/Resolved]

NARRATIVE: CASE EVENT DATE: 201904
